FAERS Safety Report 21861439 (Version 2)
Quarter: 2023Q2

REPORT INFORMATION
  Report Type: Report from Study
  Country: US (occurrence: US)
  Receive Date: 20230113
  Receipt Date: 20230630
  Transmission Date: 20230722
  Serious: Yes (Other)
  Sender: FDA-Public Use
  Company Number: US-JAZZ-2023-US-000286

PATIENT
  Age: 4 Year
  Sex: Male

DRUGS (5)
  1. EPIDIOLEX [Suspect]
     Active Substance: CANNABIDIOL
     Indication: Epilepsy
     Dosage: 130 MILLIGRAM, BID VIA TUBE
     Dates: start: 202001
  2. FYCOMPA [Concomitant]
     Active Substance: PERAMPANEL
     Dosage: UNK
  3. PHENOBARBITAL [Concomitant]
     Active Substance: PHENOBARBITAL
     Dosage: 20 MG/ 5 ML SOLUTION
  4. CLONAZEPAM [Concomitant]
     Active Substance: CLONAZEPAM
  5. ACETAMINOPHEN [Concomitant]
     Active Substance: ACETAMINOPHEN
     Dosage: 160 MG/ 5 ML LIQUID

REACTIONS (4)
  - Seizure cluster [Not Recovered/Not Resolved]
  - Nasopharyngitis [Not Recovered/Not Resolved]
  - Muscle twitching [Not Recovered/Not Resolved]
  - Muscle spasms [Not Recovered/Not Resolved]

NARRATIVE: CASE EVENT DATE: 20230105
